FAERS Safety Report 8827582 (Version 2)
Quarter: 2015Q2

REPORT INFORMATION
  Report Type: Report from Study
  Country: US (occurrence: US)
  Receive Date: 20121005
  Receipt Date: 20150630
  Transmission Date: 20150821
  Serious: Yes (Death, Other)
  Sender: FDA-Public Use
  Company Number: US-ROCHE-1099872

PATIENT
  Age: 60 Year
  Sex: Male

DRUGS (10)
  1. ACTIVASE [Suspect]
     Active Substance: ALTEPLASE
     Route: 065
  2. PROSOM [Concomitant]
     Active Substance: ESTAZOLAM
     Route: 065
  3. ACTIVASE [Suspect]
     Active Substance: ALTEPLASE
     Indication: ACUTE MYOCARDIAL INFARCTION
     Route: 042
  4. TYLENOL [Concomitant]
     Active Substance: ACETAMINOPHEN
     Route: 065
  5. MORPHINE SULPHATE DRIP [Concomitant]
     Dosage: 2-5 MG
     Route: 065
  6. ACTIVASE [Suspect]
     Active Substance: ALTEPLASE
     Route: 042
  7. ACTIVASE [Suspect]
     Active Substance: ALTEPLASE
     Route: 065
  8. ACTIVASE [Suspect]
     Active Substance: ALTEPLASE
     Route: 041
  9. COMPAZINE [Concomitant]
     Active Substance: PROCHLORPERAZINE MALEATE
     Route: 042
  10. XANAX [Concomitant]
     Active Substance: ALPRAZOLAM
     Route: 065

REACTIONS (6)
  - Musculoskeletal disorder [Unknown]
  - Tenderness [Unknown]
  - Haematoma [Unknown]
  - Dementia Alzheimer^s type [Fatal]
  - Blood creatine phosphokinase increased [Unknown]
  - Respiratory failure [Fatal]

NARRATIVE: CASE EVENT DATE: 19920407
